FAERS Safety Report 16797613 (Version 1)
Quarter: 2019Q3

REPORT INFORMATION
  Report Type: Spontaneous
  Country: US (occurrence: US)
  Receive Date: 20190912
  Receipt Date: 20190912
  Transmission Date: 20191005
  Serious: No
  Sender: FDA-Public Use
  Company Number: US-ITALFARMACO SPA-2074376

PATIENT
  Age: 53 Year
  Sex: Male

DRUGS (2)
  1. TIGLUTIK [Suspect]
     Active Substance: RILUZOLE
     Indication: AMYOTROPHIC LATERAL SCLEROSIS
     Dates: start: 20190624
  2. FLUOXETINE [Concomitant]
     Active Substance: FLUOXETINE HYDROCHLORIDE

REACTIONS (3)
  - Off label use [Not Recovered/Not Resolved]
  - Product use issue [Not Recovered/Not Resolved]
  - Diarrhoea [Not Recovered/Not Resolved]
